FAERS Safety Report 14161798 (Version 1)
Quarter: 2017Q4

REPORT INFORMATION
  Report Type: Spontaneous
  Country: US (occurrence: None)
  Receive Date: 20171104
  Receipt Date: 20171104
  Transmission Date: 20180321
  Serious: Yes (Hospitalization)
  Sender: FDA-Public Use
  Company Number: None

PATIENT
  Age: 73 Year
  Sex: Female
  Weight: 73.9 kg

DRUGS (2)
  1. CISPLATIN. [Suspect]
     Active Substance: CISPLATIN
     Dates: end: 20171026
  2. GEMCITABINE HYDROCHLORIDE. [Suspect]
     Active Substance: GEMCITABINE HYDROCHLORIDE
     Dates: end: 20171026

REACTIONS (7)
  - Cough [None]
  - Chills [None]
  - Infection [None]
  - Abdominal pain upper [None]
  - Biliary ascites [None]
  - Abdominal pain [None]
  - Post procedural complication [None]

NARRATIVE: CASE EVENT DATE: 20171030
